FAERS Safety Report 10748349 (Version 2)
Quarter: 2015Q2

REPORT INFORMATION
  Report Type: Spontaneous
  Country: US (occurrence: None)
  Receive Date: 20150120
  Receipt Date: 20150420
  Transmission Date: 20150821
  Serious: Yes (Other)
  Sender: FDA-Public Use
  Company Number: AEGR001023

PATIENT
  Age: 54 Year
  Sex: Female
  Weight: 126.1 kg

DRUGS (11)
  1. TRAZODONE [Concomitant]
     Active Substance: TRAZODONE HYDROCHLORIDE
  2. GABAPENTIN. [Concomitant]
     Active Substance: GABAPENTIN
  3. METOPROLOL (METOPROLOL TARTRATE) [Concomitant]
     Active Substance: METOPROLOL TARTRATE
  4. RANEXA (RANOLAZINE) [Concomitant]
  5. NITROSTAT (GLYCERYL TRINITRATE) [Concomitant]
  6. ASPIRIN (ACETYLSALICYLIC ACID) [Concomitant]
     Active Substance: ASPIRIN
  7. EFFIENT (PRASUGREL HYDROCHLORIDE) [Concomitant]
  8. PROMETHAZINE (PROMETHAZINE HYDROCHLORIDE) [Concomitant]
  9. JUXTAPID [Suspect]
     Active Substance: LOMITAPIDE MESYLATE
     Indication: TYPE IIA HYPERLIPIDAEMIA
     Route: 048
     Dates: start: 20141205, end: 20141218
  10. DIPHENHYDRAMINE (DIPHENHYDRAMINE HYDROCHLORIDE) [Concomitant]
  11. CRESTOR [Concomitant]
     Active Substance: ROSUVASTATIN CALCIUM

REACTIONS (6)
  - Vomiting [None]
  - Pain [None]
  - Gastritis [None]
  - Therapy cessation [None]
  - Constipation [None]
  - Flatulence [None]

NARRATIVE: CASE EVENT DATE: 20141213
